FAERS Safety Report 4286826-6 (Version None)
Quarter: 2004Q1

REPORT INFORMATION
  Report Type: 
  Country: None (occurrence: None)
  Receive Date: 20040206
  Receipt Date: 20040127
  Transmission Date: 20041129
  Serious: Yes (Hospitalization)
  Sender: FDA-Public Use
  Company Number: DE-ROCHE-357505

PATIENT
  Age: 33 Year
  Sex: Female
  Weight: 52 kg

DRUGS (60)
  1. CLONAZEPAM [Suspect]
     Dosage: PRN.
     Route: 042
     Dates: start: 20011112, end: 20011205
  2. HEPARIN SODIUM [Suspect]
     Indication: THROMBOSIS PROPHYLAXIS
     Route: 042
     Dates: start: 20011126, end: 20011203
  3. MIDAZOLAM HCL [Suspect]
     Indication: PAIN
     Route: 042
     Dates: start: 20011113, end: 20011117
  4. FOSFOCIN [Suspect]
     Indication: INFECTION
     Route: 042
     Dates: start: 20011130, end: 20011205
  5. LASIX [Suspect]
     Indication: OEDEMA
     Route: 042
     Dates: end: 20011126
  6. NOVALGIN [Suspect]
     Indication: PAIN
     Dosage: PRN.
     Route: 042
     Dates: start: 20011128, end: 20011202
  7. TAVOR EXPIDET [Suspect]
     Route: 048
     Dates: start: 20011118, end: 20011202
  8. LAMICTAL [Suspect]
     Route: 048
     Dates: start: 20011112, end: 20011114
  9. LAMICTAL [Suspect]
     Route: 048
     Dates: start: 20011118, end: 20011124
  10. COTRIM [Suspect]
     Indication: INFECTION
     Route: 042
     Dates: start: 20011116, end: 20011120
  11. FRAXIPARINE [Suspect]
     Indication: THROMBOSIS PROPHYLAXIS
     Route: 058
     Dates: start: 20011117, end: 20011124
  12. DIFLUCAN [Suspect]
     Route: 042
     Dates: start: 20011118, end: 20011120
  13. CIPROBAY [Suspect]
     Indication: INFECTION
     Route: 042
     Dates: start: 20011121, end: 20011123
  14. AUGMENTIN '125' [Suspect]
     Indication: INFECTION
     Route: 042
     Dates: start: 20011121, end: 20011123
  15. NOVODIGAL [Suspect]
     Indication: CARDIAC FAILURE
     Route: 042
     Dates: start: 20011121, end: 20011202
  16. LIPOFUNDIN [Suspect]
     Indication: PARENTERAL NUTRITION
     Dosage: DAILY, PRN.
     Route: 042
     Dates: start: 20011121, end: 20011205
  17. RANITIDINE [Suspect]
     Indication: PROPHYLAXIS
     Route: 042
     Dates: start: 20011123, end: 20011126
  18. URSODESOXYCHOLIC ACID [Suspect]
     Route: 048
     Dates: start: 20011123, end: 20011128
  19. HEPA-MERZ [Suspect]
     Indication: LIVER DISORDER
     Route: 048
     Dates: start: 20011124, end: 20011128
  20. AMINOSTERIL [Suspect]
     Indication: PARENTERAL NUTRITION
     Route: 042
     Dates: start: 20011124, end: 20011130
  21. ACTRAPID [Suspect]
     Indication: METABOLIC DISORDER
     Route: 042
     Dates: start: 20011124, end: 20011202
  22. BIFITERAL [Suspect]
     Indication: CONSTIPATION
     Route: 048
     Dates: start: 20011128, end: 20011205
  23. CLAFORAN [Suspect]
     Indication: INFECTION
     Route: 042
     Dates: start: 20011130, end: 20011201
  24. FERRLECIT [Suspect]
     Indication: IRON DEFICIENCY
     Route: 042
     Dates: start: 20011205, end: 20011205
  25. KETANEST [Suspect]
     Route: 042
     Dates: start: 20011205, end: 20011205
  26. CLONIDIN [Suspect]
     Indication: HYPERTENSION
     Route: 042
     Dates: start: 20011205
  27. THEOPHYLLINE [Suspect]
     Indication: BRONCHOSPASM
     Dosage: DOSE: 6 MG/HR.
     Route: 042
     Dates: start: 20011205
  28. HEPARIN [Concomitant]
     Indication: THROMBOSIS PROPHYLAXIS
     Route: 058
     Dates: start: 20011109, end: 20011109
  29. ATOSIL [Concomitant]
     Route: 042
     Dates: end: 20011111
  30. BRICANYL [Concomitant]
     Indication: RESPIRATORY TRACT CONGESTION
     Dosage: FREQUENCY: PRN.
     Route: 042
     Dates: end: 20011112
  31. VANCOMYCIN [Concomitant]
     Indication: INFECTION
     Route: 042
     Dates: end: 20011113
  32. AKINETON [Concomitant]
     Route: 042
     Dates: end: 20011113
  33. ZIENAM [Concomitant]
     Indication: INFECTION
     Route: 042
     Dates: end: 20011113
  34. ERGENYL [Concomitant]
     Route: 042
     Dates: end: 20011115
  35. IRON [Concomitant]
     Indication: IRON DEFICIENCY
     Route: 042
     Dates: end: 20011116
  36. SAB SIMPLEX [Concomitant]
     Route: 048
     Dates: end: 20011120
  37. PANTOZOL [Concomitant]
     Route: 042
     Dates: end: 20011121
  38. THIAMINE HCL [Concomitant]
     Indication: VITAMIN B1 DEFICIENCY
     Dosage: DOSE: REPORTED AS 100.
     Route: 042
     Dates: end: 20011126
  39. VITAMIN B KOMPLEX [Concomitant]
     Indication: VITAMIN B COMPLEX DEFICIENCY
     Route: 042
     Dates: end: 20011126
  40. NUTRIFLEX [Concomitant]
     Indication: PARENTERAL NUTRITION
     Route: 042
     Dates: end: 20011123
  41. ALBUMIN (HUMAN) [Concomitant]
     Indication: FLUID REPLACEMENT
     Dosage: 100 ML TREATMENT WAS DISCONTINUED ON 16 NOV 2001. 200 ML TREATMENT WAS FROM 21 NOV 2001 TO 24 NOV 2+
     Route: 042
     Dates: end: 20011124
  42. FERRO-FOLSAN [Concomitant]
     Indication: IRON DEFICIENCY
     Route: 048
     Dates: end: 20011128
  43. SODIUM CHLORIDE 0.9% [Concomitant]
     Indication: FLUID REPLACEMENT
     Route: 042
     Dates: end: 20011130
  44. OTRIVEN [Concomitant]
     Route: 045
     Dates: end: 20011130
  45. NYSTATIN [Concomitant]
     Dosage: FREQUENCY: SEVERAL TIMES A DAY.
     Route: 065
     Dates: end: 20011202
  46. XANEF [Concomitant]
     Indication: CARDIAC FAILURE
     Route: 048
     Dates: end: 20011202
  47. NOREPINEPHRINE BITARTRATE [Concomitant]
     Indication: SHOCK
     Route: 042
     Dates: start: 20011109, end: 20011203
  48. DECORTIN H [Concomitant]
     Indication: COLITIS ULCERATIVE
     Route: 042
     Dates: end: 20011205
  49. POTASSIUM CHLORIDE [Concomitant]
     Indication: METABOLIC DISORDER
     Route: 042
     Dates: end: 20011117
  50. GLUCOSE [Concomitant]
     Indication: FLUID REPLACEMENT
     Dosage: DOSE REGIMEN WAS REPORTED AS : 5% AT 2000 ML / DAY, 40% AT 500 ML / DAY AND 70 % AT 2000 ML /DAY.
     Route: 042
     Dates: end: 20011205
  51. KONAKION [Concomitant]
     Indication: VITAMIN K DEFICIENCY
     Dosage: DOSE WAS ALSO REPORTED AS 2 MG.
     Route: 042
     Dates: end: 20011113
  52. MULTIVITAMIN [Concomitant]
     Route: 042
     Dates: start: 20011205, end: 20011205
  53. DIPIDOLOR [Concomitant]
     Indication: PAIN
     Dosage: 21 NOV 2001:3 MG, QDS WAS DISCONTINUED. 05 DEC 2001: 3 MG, TID, PRN WAS STARTED.
     Route: 042
  54. CALCIUM [Concomitant]
     Indication: CALCIUM DEFICIENCY
     Dosage: DOSAGE REGIMEN:  26 NOV 2001:10 ML / DAY OF 20% AMPOULE WAS DISCONTINUED. 05 DEC 2001: 1 AMPOULE OF+
     Route: 042
  55. PASPERTIN [Concomitant]
     Indication: NAUSEA
     Route: 042
     Dates: start: 20011113, end: 20011117
  56. KETAMIN [Concomitant]
     Indication: PAIN
     Route: 042
     Dates: start: 20011113, end: 20011117
  57. CLONT [Concomitant]
     Indication: INFECTION
     Route: 042
     Dates: start: 20011115, end: 20011120
  58. FENTANYL [Concomitant]
     Indication: PAIN
     Dosage: DOSE WAS ALSO REPORTED AS 1.5 MG.
     Route: 042
     Dates: start: 20011120, end: 20011120
  59. DOBUTAMIN [Concomitant]
     Indication: CARDIAC FAILURE
     Route: 042
     Dates: start: 20011121, end: 20011121
  60. MULTIVITAMIN [Concomitant]
     Indication: PARENTERAL NUTRITION
     Dosage: DOSE: 1 AMPOULE PER DAY, PRN.
     Route: 042
     Dates: start: 20011121, end: 20011205

REACTIONS (1)
  - STEVENS-JOHNSON SYNDROME [None]
